FAERS Safety Report 7214151-X (Version None)
Quarter: 2011Q1

REPORT INFORMATION
  Report Type: 
  Country: None (occurrence: None)
  Receive Date: 20110107
  Receipt Date: 20110104
  Transmission Date: 20110831
  Serious: Yes (Hospitalization)
  Sender: FDA-Public Use
  Company Number: US-AMGEN-USASP2011000487

PATIENT

DRUGS (3)
  1. ENBREL [Suspect]
     Indication: RHEUMATOID ARTHRITIS
     Dosage: 50 MG, QWK
     Dates: start: 20100928
  2. METHOTREXATE [Concomitant]
  3. PLAQUENIL [Concomitant]

REACTIONS (9)
  - ASTHENIA [None]
  - DRUG INTOLERANCE [None]
  - SLE ARTHRITIS [None]
  - OEDEMA PERIPHERAL [None]
  - DEHYDRATION [None]
  - BRONCHITIS [None]
  - LETHARGY [None]
  - SYSTEMIC LUPUS ERYTHEMATOSUS [None]
  - EYE SWELLING [None]
